FAERS Safety Report 6296206-X (Version None)
Quarter: 2009Q3

REPORT INFORMATION
  Report Type: 
  Country: None (occurrence: None)
  Receive Date: 20090803
  Receipt Date: 20090803
  Transmission Date: 20100115
  Serious: Yes (Life-Threatening)
  Sender: FDA-Public Use
  Company Number: None

PATIENT
  Sex: Male
  Weight: 77.7 kg

DRUGS (37)
  1. LITHIUM CARBONATE [Suspect]
     Indication: AMYOTROPHIC LATERAL SCLEROSIS
     Dosage: 1 CAPSULE A.M. 2 CAPSULES P.M. TID P.O.
     Route: 048
     Dates: start: 20090317, end: 20090529
  2. TAMSULOSIN HCL [Concomitant]
  3. HYDROCHLOROTHIAZIDE [Concomitant]
  4. RILUZOLE [Concomitant]
  5. INSULIN NOVOMIX [Concomitant]
  6. VALSARTAN [Concomitant]
  7. EFA OMEGA 3 [Concomitant]
  8. MAGNESIUM [Concomitant]
  9. SIBERIAN GINSENG [Concomitant]
  10. LECITHIN [Concomitant]
  11. IRON [Concomitant]
  12. CALCIUM [Concomitant]
  13. MULTI-VITAMIN [Concomitant]
  14. ASCORBIC ACID [Concomitant]
  15. GARLIC [Concomitant]
  16. VITAMIN B COMPLEX CAP [Concomitant]
  17. COENZYME Q10 [Concomitant]
  18. VITAMIN D3 [Concomitant]
  19. N-ACETYLCYSTEINE [Concomitant]
  20. LIPOIC ACID [Concomitant]
  21. GRAPSEED EXTRACT [Concomitant]
  22. VITAMIN E [Concomitant]
  23. HYPERICUM PERFUME [Concomitant]
  24. DIGESTIVE ENZYME [Concomitant]
  25. ACIDOL/BIFIDUS [Concomitant]
  26. MELATONIN [Concomitant]
  27. METHYLCOBALAMIN [Concomitant]
  28. VITAMIN D3 [Concomitant]
  29. ACETAMINOPHEN, EXTRA STRENTH [Concomitant]
  30. NIFEDIPINE [Concomitant]
  31. PEPTO-BISMAL [Concomitant]
  32. ZOPICLONE [Concomitant]
  33. DEHYDROEPIANDROSTERONE [Concomitant]
  34. ACETAMINOPHEN WITH CAFFEINE, CODEINE PHOSPHATE [Concomitant]
  35. DOCUSATE SODIUM [Concomitant]
  36. STANDARDIZED SENNOSIDES/DOCUSATE SODIUM [Concomitant]
  37. COCONUT HAND CREAM WITH SHEA BUTTER [Concomitant]

REACTIONS (7)
  - CONFUSIONAL STATE [None]
  - DEPRESSION [None]
  - DIZZINESS [None]
  - INTENTIONAL OVERDOSE [None]
  - LETHARGY [None]
  - SOMNOLENCE [None]
  - SUICIDE ATTEMPT [None]
